FAERS Safety Report 8364136-5 (Version None)
Quarter: 2012Q2

REPORT INFORMATION
  Report Type: 
  Country: None (occurrence: None)
  Receive Date: 20120516
  Receipt Date: 20120507
  Transmission Date: 20120825
  Serious: Yes (Death, Hospitalization, Other)
  Sender: FDA-Public Use
  Company Number: US-BRISTOL-MYERS SQUIBB COMPANY-16028151

PATIENT
  Age: 61 Year
  Sex: Male
  Weight: 72 kg

DRUGS (2)
  1. IPILIMUMAB [Suspect]
     Indication: MALIGNANT MELANOMA
     Dosage: DAY 1 C3 DELAYED UNTIL 01SEP11  START DT:1SEP11 LAST DOSE:1SEP11 RESUMED ON 22SEP11
     Route: 042
     Dates: start: 20110715
  2. LEUKINE [Suspect]
     Indication: MALIGNANT MELANOMA
     Dosage: C3 DELAYED UNTIL 01SEP11 START DT:1SEP11 LAST DOSE:14SEP11(3500MCG) RESUMED ON 22SEP11
     Route: 058
     Dates: start: 20110715

REACTIONS (4)
  - EMBOLISM [None]
  - FATIGUE [None]
  - HYPOTENSION [None]
  - NEOPLASM MALIGNANT [None]
